FAERS Safety Report 6234660-X (Version None)
Quarter: 2009Q2

REPORT INFORMATION
  Report Type: 
  Country: None (occurrence: None)
  Receive Date: 20090616
  Receipt Date: 20090616
  Transmission Date: 20091009
  Serious: Yes (Other)
  Sender: FDA-Public Use
  Company Number: None

PATIENT
  Age: 57 Year
  Sex: Male
  Weight: 90.7194 kg

DRUGS (2)
  1. METHADONE HCL [Suspect]
     Indication: PAIN
     Dosage: 20MG 2 TIMES DAY PO SEVERAL MONTHS
     Route: 048
  2. OXYCODONE HCL [Suspect]
     Indication: BREAKTHROUGH PAIN
     Dosage: 30MG AS NEEDED TO 4 DAY PO SEVERAL YEARS
     Route: 048

REACTIONS (3)
  - DISTURBANCE IN SEXUAL AROUSAL [None]
  - EJACULATION DISORDER [None]
  - MALE ORGASMIC DISORDER [None]
